FAERS Safety Report 4806782-9 (Version None)
Quarter: 2005Q4

REPORT INFORMATION
  Report Type: 
  Country: None (occurrence: None)
  Receive Date: 20051019
  Receipt Date: 20050930
  Transmission Date: 20060501
  Serious: Yes (Hospitalization)
  Sender: FDA-Public Use
  Company Number: FR_051007247

PATIENT
  Age: 28 Year
  Sex: Male

DRUGS (1)
  1. ZYPREXA [Suspect]
     Indication: SCHIZOPHRENIA, DISORGANISED TYPE
     Dosage: 20 MG/L DAY
     Dates: start: 20030101, end: 20050401

REACTIONS (12)
  - BRAIN NEOPLASM BENIGN [None]
  - CEREBROVASCULAR DISORDER [None]
  - CONDITION AGGRAVATED [None]
  - DIFFICULTY IN WALKING [None]
  - HEMIPARESIS [None]
  - HIGH DENSITY LIPOPROTEIN DECREASED [None]
  - HYPERTRIGLYCERIDAEMIA [None]
  - IMPAIRED WORK ABILITY [None]
  - ISCHAEMIC STROKE [None]
  - MOTOR DYSFUNCTION [None]
  - PSYCHOTIC DISORDER [None]
  - TREATMENT NONCOMPLIANCE [None]
